FAERS Safety Report 22108572 (Version 1)
Quarter: 2023Q1

REPORT INFORMATION
  Report Type: Spontaneous
  Country: IR (occurrence: IR)
  Receive Date: 20230317
  Receipt Date: 20230317
  Transmission Date: 20230417
  Serious: Yes (Life-Threatening, Hospitalization, Other)
  Sender: FDA-Public Use
  Company Number: IR-CIPLA LTD.-2023IR01460

PATIENT

DRUGS (5)
  1. BLEOMYCIN SULFATE [Suspect]
     Active Substance: BLEOMYCIN SULFATE
     Indication: Hodgkin^s disease nodular sclerosis stage II
     Dosage: 15 MILLIGRAM EVERY TWO WEEKS FOR A TOTAL OF 9 CHEMOTHERAPY SESSION (5TH MONTH OF CHEMOTHERAPY)
     Route: 065
  2. DOXORUBICIN [Suspect]
     Active Substance: DOXORUBICIN
     Indication: Hodgkin^s disease nodular sclerosis stage II
     Dosage: 37.5 MILLIGRAM EVERY TWO WEEKS FOR A TOTAL OF 12 INJECTION SESSIONS (SIX CYCLES)
     Route: 065
  3. VINBLASTINE [Suspect]
     Active Substance: VINBLASTINE
     Indication: Hodgkin^s disease nodular sclerosis stage II
     Dosage: 9 MILLIGRAM EVERY TWO WEEKS FOR A TOTAL OF 12 INJECTION SESSIONS (SIX CYCLES)
     Route: 065
  4. DACARBAZINE [Suspect]
     Active Substance: DACARBAZINE
     Indication: Hodgkin^s disease nodular sclerosis stage II
     Dosage: 560 MILLIGRAM, EVERY TWO WEEKS FOR A TOTAL OF 12 INJECTION SESSIONS (SIX CYCLES)
     Route: 065
  5. GRANULOCYTE COLONY-STIMULATING FACTOR NOS [Concomitant]
     Active Substance: GRANULOCYTE COLONY-STIMULATING FACTOR NOS
     Indication: Febrile neutropenia
     Dosage: UNK, AFTER EVERY CHEMOTHERAPY SESSION
     Route: 065

REACTIONS (2)
  - Pulmonary toxicity [Recovering/Resolving]
  - Febrile neutropenia [Unknown]
